FAERS Safety Report 21967341 (Version 5)
Quarter: 2024Q1

REPORT INFORMATION
  Report Type: Report from Study
  Country: US (occurrence: US)
  Receive Date: 20230208
  Receipt Date: 20240115
  Transmission Date: 20240410
  Serious: Yes (Hospitalization, Other)
  Sender: FDA-Public Use
  Company Number: US-ABBVIE-4284749

PATIENT
  Age: 78 Year
  Sex: Male
  Weight: 142 kg

DRUGS (29)
  1. HUMIRA [Suspect]
     Active Substance: ADALIMUMAB
     Indication: Colitis ulcerative
     Dosage: CITRATE FREE/FORM STRENGTH: 40 MILLIGRAM
     Route: 058
     Dates: start: 20210427
  2. HUMIRA [Suspect]
     Active Substance: ADALIMUMAB
     Dosage: CITRATE FREE/FORM STRENGTH: 40 MILLIGRAM
     Route: 058
  3. HUMIRA [Suspect]
     Active Substance: ADALIMUMAB
     Dosage: CITRATE FREE/FORM STRENGTH: 40 MILLIGRAM, STOP DATE: APR 2021
     Route: 058
     Dates: start: 20210420
  4. HUMIRA [Suspect]
     Active Substance: ADALIMUMAB
     Route: 058
  5. TYLENOL [Concomitant]
     Active Substance: ACETAMINOPHEN
     Indication: Pain
     Dosage: EVERY 6 HOURS AS NEEDED
     Route: 048
  6. PROAIR HFA [Concomitant]
     Active Substance: ALBUTEROL SULFATE
     Indication: Wheezing
     Dosage: (PROAIR HFA) 108 (90 BASE)3 MCG/ACT INHALER??INHALE 2 PUFFS INTO THE LUNGS EVERY 6 HOURS AS NEEDED
     Route: 055
     Dates: start: 20221214, end: 20230102
  7. ZYLOPRIM [Concomitant]
     Active Substance: ALLOPURINOL
     Indication: Product used for unknown indication
     Dosage: 100 MG TABLET
     Route: 065
     Dates: start: 20220609, end: 20230102
  8. LIPITOR [Concomitant]
     Active Substance: ATORVASTATIN CALCIUM
     Indication: Product used for unknown indication
     Dosage: 40 MG TABLET
     Dates: start: 20220308
  9. URECHOLINE [Concomitant]
     Active Substance: BETHANECHOL CHLORIDE
     Indication: Product used for unknown indication
     Dosage: 25 MG TABLET
     Dates: end: 20230102
  10. SYMBICORT [Concomitant]
     Active Substance: BUDESONIDE\FORMOTEROL FUMARATE DIHYDRATE
     Indication: Product used for unknown indication
     Dosage: 160-4.5 MCG/ACT AERO, USE 2 INHALATIONS TWICE A DAY
     Dates: start: 20221214
  11. VITAMIN D3 [Concomitant]
     Active Substance: CHOLECALCIFEROL
     Indication: Product used for unknown indication
     Dosage: 1000 UNITS TABS TABLET
     Route: 048
  12. TRIGLIDE [Concomitant]
     Active Substance: FENOFIBRATE
     Indication: Product used for unknown indication
     Dosage: 160 MG TABLET
     Dates: start: 20220210
  13. LASIX [Concomitant]
     Active Substance: FUROSEMIDE
     Indication: Product used for unknown indication
     Dosage: 20 MG TABLET
     Route: 048
     Dates: start: 20230106
  14. NEURONTIN [Concomitant]
     Active Substance: GABAPENTIN
     Indication: Product used for unknown indication
     Route: 048
     Dates: start: 20230105
  15. GLUCOSAMINE CHONDROITIN JOINT FOOD [Concomitant]
     Indication: Product used for unknown indication
     Route: 048
  16. LANTUS SOLOSTAR [Concomitant]
     Active Substance: INSULIN GLARGINE
     Indication: Product used for unknown indication
     Dosage: 100 UNIT/ML INJECTION PEN?INJECT 18 UNITS UNDER THE SKIN TWICE A DAY
     Dates: end: 20230102
  17. ATROVENT [Concomitant]
     Active Substance: IPRATROPIUM BROMIDE
     Indication: Product used for unknown indication
     Dosage: 0.03 % NASAL SPRAY, 2 SPRAYS BY NASAL ROUTE DAILY - NASAL
     Route: 045
     Dates: start: 20211025, end: 20230102
  18. LIDOCAINE [Concomitant]
     Active Substance: LIDOCAINE
     Indication: Product used for unknown indication
     Dosage: PLACE 1 PATCH ONTO THE SKIN DAILY
     Route: 062
     Dates: start: 20230106
  19. MAGNESIUM OXIDE [Concomitant]
     Active Substance: MAGNESIUM OXIDE
     Indication: Product used for unknown indication
     Route: 048
  20. MELATONIN [Concomitant]
     Active Substance: MELATONIN
     Indication: Insomnia
     Dosage: 3 MG TABS?TAKE 1 TABLET BY MOUTH NIGHTLY AS NEEDED (INSOMNIA) - ORAL
     Route: 048
     Dates: start: 20230105
  21. LOPRESSOR [Concomitant]
     Active Substance: METOPROLOL TARTRATE
     Indication: Product used for unknown indication
     Dosage: 25 MG TABLET?TAKE ONE-HALF (1/2) TABLET TWICE A DAY
     Dates: start: 20220505
  22. SINGULAIR [Concomitant]
     Active Substance: MONTELUKAST SODIUM
     Indication: Product used for unknown indication
     Dosage: 10 MG TABLET
     Route: 048
     Dates: start: 20221214
  23. PROTONIX [Concomitant]
     Active Substance: PANTOPRAZOLE SODIUM
     Indication: Product used for unknown indication
     Dosage: 40 MG TABLET
     Dates: start: 20221017
  24. KLOR-CON [Concomitant]
     Active Substance: POTASSIUM CHLORIDE
     Indication: Product used for unknown indication
     Dosage: 10 MEQ
     Route: 048
     Dates: end: 20230102
  25. FLOMAX [Concomitant]
     Active Substance: TAMSULOSIN HYDROCHLORIDE
     Indication: Product used for unknown indication
     Dosage: 0.4 MG CAPSULE
     Route: 048
     Dates: end: 20230102
  26. CHRONULAC [Concomitant]
     Active Substance: LACTULOSE
     Indication: Product used for unknown indication
     Dosage: TIME INTERVAL: 0.33333333 DAYS: 10GM/15 ML SOLUTION
     Route: 048
     Dates: end: 20230102
  27. DULERA [Concomitant]
     Active Substance: FORMOTEROL FUMARATE DIHYDRATE\MOMETASONE FUROATE
     Indication: Product used for unknown indication
     Dosage: 2 PUFF
     Route: 055
     Dates: end: 20230102
  28. ENTRESTO [Concomitant]
     Active Substance: SACUBITRIL\VALSARTAN
     Indication: Product used for unknown indication
     Dosage: 24-26 MG PER 1 TABLET
     Route: 048
     Dates: end: 20230101
  29. TRICOR [Concomitant]
     Active Substance: FENOFIBRATE
     Indication: Product used for unknown indication
     Dosage: TABLET 54MG
     Route: 048
     Dates: end: 20230102

REACTIONS (26)
  - Foot fracture [Recovered/Resolved]
  - Lower limb fracture [Recovered/Resolved]
  - Lower limb fracture [Not Recovered/Not Resolved]
  - Fall [Recovered/Resolved]
  - Influenza [Recovered/Resolved]
  - Fibula fracture [Unknown]
  - Troponin increased [Unknown]
  - Arthralgia [Unknown]
  - Joint swelling [Unknown]
  - Hypoxia [Unknown]
  - Gait disturbance [Unknown]
  - Pain in extremity [Unknown]
  - Electrocardiogram T wave inversion [Unknown]
  - Weight abnormal [Unknown]
  - Blood pressure abnormal [Unknown]
  - Fall [Unknown]
  - Influenza [Recovered/Resolved]
  - Anaemia [Unknown]
  - Soft tissue swelling [Unknown]
  - Urinary retention [Unknown]
  - Pulmonary hypertension [Unknown]
  - Acute myocardial infarction [Unknown]
  - Cardiac failure congestive [Unknown]
  - Chronic kidney disease [Recovering/Resolving]
  - Atrial fibrillation [Unknown]
  - Neuropathy peripheral [Unknown]

NARRATIVE: CASE EVENT DATE: 20220531
